FAERS Safety Report 4952819-6 (Version None)
Quarter: 2006Q1

REPORT INFORMATION
  Report Type: 
  Country: None (occurrence: None)
  Receive Date: 20060324
  Receipt Date: 20060315
  Transmission Date: 20060701
  Serious: Yes (Hospitalization, Other)
  Sender: FDA-Public Use
  Company Number: DE-JNJFOC-20060300016

PATIENT
  Sex: Female

DRUGS (5)
  1. REMINYL [Suspect]
     Route: 065
  2. REMINYL [Suspect]
     Indication: SENILE DEMENTIA
     Route: 065
  3. CORVATON [Concomitant]
  4. RAMIPRIL [Concomitant]
  5. ASPIRIN [Concomitant]

REACTIONS (4)
  - CHEST PAIN [None]
  - ERUCTATION [None]
  - NAUSEA [None]
  - RESPIRATORY DISORDER [None]
